APPROVED DRUG PRODUCT: CHLORTHALIDONE
Active Ingredient: CHLORTHALIDONE
Strength: 25MG
Dosage Form/Route: TABLET;ORAL
Application: A089051 | Product #001
Applicant: USL PHARMA INC
Approved: Jun 1, 1987 | RLD: No | RS: No | Type: DISCN